FAERS Safety Report 10658852 (Version 2)
Quarter: 2014Q4

REPORT INFORMATION
  Report Type: Spontaneous
  Country: IL (occurrence: IL)
  Receive Date: 20141217
  Receipt Date: 20141217
  Transmission Date: 20150529
  Serious: Yes (Death, Hospitalization, Other)
  Sender: FDA-Public Use
  Company Number: IL-SA-2014SA144474

PATIENT
  Age: 71 Year
  Sex: Male

DRUGS (3)
  1. JEVTANA [Suspect]
     Active Substance: CABAZITAXEL
     Route: 058
  2. JEVTANA [Suspect]
     Active Substance: CABAZITAXEL
     Route: 042
  3. JEVTANA [Suspect]
     Active Substance: CABAZITAXEL
     Route: 042

REACTIONS (4)
  - Sepsis [Fatal]
  - Neutropenia [Fatal]
  - Leukopenia [Fatal]
  - Medication error [Unknown]
